FAERS Safety Report 8098854-3 (Version None)
Quarter: 2012Q1

REPORT INFORMATION
  Report Type: 
  Country: None (occurrence: None)
  Receive Date: 20120129
  Receipt Date: 20110923
  Transmission Date: 20120608
  Serious: No
  Sender: FDA-Public Use
  Company Number: US-ABBOTT-11P-163-0857609-00

PATIENT
  Age: 53 Year
  Sex: Female

DRUGS (21)
  1. HYZARR [Concomitant]
     Indication: HYPERTENSION
     Dosage: 100/25MG
  2. VITAMIN D [Concomitant]
     Indication: PRODUCT USED FOR UNKNOWN INDICATION
  3. ALLOPURINOL [Concomitant]
     Indication: GOUT
  4. LOVAZA [Concomitant]
     Indication: PRODUCT USED FOR UNKNOWN INDICATION
  5. ESTER-C [Concomitant]
     Indication: PRODUCT USED FOR UNKNOWN INDICATION
  6. TOPROL-XL [Concomitant]
     Indication: HYPERTENSION
  7. LIPITOR [Concomitant]
     Indication: BLOOD CHOLESTEROL INCREASED
     Dosage: AT BEDTIME
  8. ALPRAZOLAM [Concomitant]
     Indication: PANIC ATTACK
  9. HUMIRA [Suspect]
     Indication: RHEUMATOID ARTHRITIS
     Dates: start: 20110909
  10. ASACOL [Concomitant]
     Indication: CROHN'S DISEASE
  11. FOLIC ACID [Concomitant]
     Indication: PRODUCT USED FOR UNKNOWN INDICATION
  12. POTASSIUM [Concomitant]
     Indication: PRODUCT USED FOR UNKNOWN INDICATION
  13. BAYER ASA [Concomitant]
     Indication: PRODUCT USED FOR UNKNOWN INDICATION
  14. LOMOTIL [Concomitant]
     Indication: DIARRHOEA
  15. ALPRAZOLAM [Concomitant]
     Indication: ANXIETY
  16. VICODIN [Concomitant]
     Indication: PAIN
  17. METHOTREXATE [Concomitant]
     Indication: RHEUMATOID ARTHRITIS
  18. MELOXICAM [Concomitant]
     Indication: JOINT STIFFNESS
  19. PROVIGIL [Concomitant]
     Indication: SLEEP APNOEA SYNDROME
  20. FEXOFENADINE [Concomitant]
     Indication: SINUS DISORDER
  21. CALCIUM [Concomitant]
     Indication: PRODUCT USED FOR UNKNOWN INDICATION

REACTIONS (2)
  - SINUSITIS [None]
  - OSTEOPOROSIS [None]
